FAERS Safety Report 7568969-4 (Version None)
Quarter: 2011Q2

REPORT INFORMATION
  Report Type: 
  Country: None (occurrence: None)
  Receive Date: 20110623
  Receipt Date: 20110613
  Transmission Date: 20111010
  Serious: Yes (Other)
  Sender: FDA-Public Use
  Company Number: US-UCBSA-034223

PATIENT
  Age: 24 Year
  Sex: Female
  Weight: 61 kg

DRUGS (26)
  1. LAMICTAL [Suspect]
     Route: 048
     Dates: start: 20030325
  2. LORTAB [Concomitant]
     Dosage: 30/1500 MG
     Dates: start: 20110315
  3. AXERT [Concomitant]
     Indication: MIGRAINE
     Dates: start: 20090101
  4. PROPRANOLOL [Concomitant]
     Indication: MIGRAINE
     Route: 048
     Dates: start: 20091025, end: 20110210
  5. LAMICTAL [Concomitant]
     Route: 048
     Dates: start: 19980325
  6. LYRICA [Interacting]
     Route: 048
     Dates: start: 20080325
  7. LAMICTAL [Suspect]
     Route: 048
     Dates: start: 20110204
  8. LAMICTAL [Suspect]
     Dosage: DOSE REDUCED
  9. LAMICTAL [Suspect]
     Dosage: DOSE REDUCED
  10. VIMPAT [Interacting]
     Indication: EPILEPSY
     Route: 048
     Dates: start: 20091201
  11. DEPAKOTE [Interacting]
     Indication: EPILEPSY
     Route: 048
     Dates: start: 20110520
  12. LORAZEPAM [Concomitant]
     Indication: EPILEPSY
     Dates: start: 20110302
  13. PROPRANOLOL [Concomitant]
     Indication: COMPLEX PARTIAL SEIZURES
     Route: 048
     Dates: start: 20091025, end: 20110210
  14. LAMICTAL [Suspect]
     Indication: CONVULSION
     Route: 048
     Dates: start: 19980325
  15. LORTAB [Concomitant]
     Indication: FIBROMYALGIA
     Dosage: 10/500, 20/1000 MG DAILY
     Route: 048
     Dates: start: 20101006
  16. LYRICA [Interacting]
     Indication: EPILEPSY
     Route: 048
     Dates: start: 20070102
  17. LAMICTAL [Suspect]
     Indication: GRAND MAL CONVULSION
     Route: 048
     Dates: start: 19980325
  18. DEPAKOTE [Interacting]
     Route: 048
     Dates: start: 20110529
  19. LYRICA [Interacting]
     Route: 048
     Dates: start: 20080325
  20. LAMICTAL [Suspect]
     Route: 048
     Dates: start: 20030325
  21. EXCEDRIN BACK + BODY [Concomitant]
     Indication: FIBROMYALGIA
     Dates: start: 20110101
  22. EXCEDRIN (MIGRAINE) [Concomitant]
     Indication: MIGRAINE
     Dosage: 250MG-250MG-65MG
     Dates: start: 20000303
  23. LAMICTAL [Suspect]
     Route: 048
     Dates: start: 20110204
  24. LYRICA [Interacting]
     Indication: FIBROMYALGIA
     Route: 048
     Dates: start: 20070102
  25. IBUPROFEN [Concomitant]
     Indication: MIGRAINE
     Route: 048
     Dates: start: 19970303
  26. LYRICA [Concomitant]
     Route: 048
     Dates: start: 20070102

REACTIONS (8)
  - VISION BLURRED [None]
  - LOSS OF CONSCIOUSNESS [None]
  - DRY MOUTH [None]
  - NAUSEA [None]
  - BALANCE DISORDER [None]
  - DRUG INTERACTION [None]
  - DIZZINESS [None]
  - HEADACHE [None]
